FAERS Safety Report 18441169 (Version 1)
Quarter: 2020Q4

REPORT INFORMATION
  Report Type: Spontaneous
  Country: US (occurrence: US)
  Receive Date: 20201029
  Receipt Date: 20201029
  Transmission Date: 20210114
  Serious: No
  Sender: FDA-Public Use
  Company Number: US-JNJFOC-20201040440

PATIENT
  Age: 82 Year
  Sex: Female
  Weight: 51.76 kg

DRUGS (2)
  1. TYLENOL [Suspect]
     Active Substance: ACETAMINOPHEN
     Indication: HEADACHE
     Dosage: 2 CAPSULES ONCE A DAY / DATE OF DRUG LAST ADMIN: 20-OCT-2020
     Route: 048
     Dates: start: 20201019
  2. TYLENOL [Suspect]
     Active Substance: ACETAMINOPHEN
     Indication: SINUS DISORDER

REACTIONS (2)
  - Product use in unapproved indication [Unknown]
  - Insomnia [Recovered/Resolved]

NARRATIVE: CASE EVENT DATE: 20201019
